FAERS Safety Report 6157051-9 (Version None)
Quarter: 2009Q2

REPORT INFORMATION
  Report Type: 
  Country: None (occurrence: None)
  Receive Date: 20090413
  Receipt Date: 20090406
  Transmission Date: 20091009
  Serious: Yes (Hospitalization)
  Sender: FDA-Public Use
  Company Number: FABR-1000401

PATIENT
  Age: 27 Year
  Sex: Male
  Weight: 77 kg

DRUGS (1)
  1. FABRAZYME [Suspect]
     Indication: FABRY'S DISEASE
     Dosage: 70 MG, Q2W, INTRAVENOUS
     Route: 042
     Dates: start: 20080813, end: 20081015

REACTIONS (2)
  - HYPOAESTHESIA [None]
  - MUSCULAR WEAKNESS [None]
